FAERS Safety Report 9890384 (Version 1)
Quarter: 2014Q1

REPORT INFORMATION
  Report Type: Spontaneous
  Country: ES (occurrence: ES)
  Receive Date: 20140212
  Receipt Date: 20140212
  Transmission Date: 20141002
  Serious: Yes (Hospitalization)
  Sender: FDA-Public Use
  Company Number: ES-ROCHE-1347824

PATIENT
  Age: 36 Year
  Sex: Female

DRUGS (2)
  1. XELODA [Suspect]
     Indication: PRODUCT USED FOR UNKNOWN INDICATION
     Route: 048
     Dates: start: 20130918, end: 20131030
  2. LAPATINIB [Interacting]
     Indication: PRODUCT USED FOR UNKNOWN INDICATION
     Route: 048
     Dates: start: 20130918, end: 20131030

REACTIONS (3)
  - Diarrhoea [Recovered/Resolved]
  - Shock [Recovered/Resolved]
  - Drug interaction [Unknown]
